FAERS Safety Report 15214871 (Version 1)
Quarter: 2018Q3

REPORT INFORMATION
  Report Type: Spontaneous
  Country: US (occurrence: US)
  Receive Date: 20180703
  Receipt Date: 20180703
  Transmission Date: 20181010
  Serious: No
  Sender: FDA-Public Use
  Company Number: None

PATIENT
  Sex: Female

DRUGS (1)
  1. REMICADE [Suspect]
     Active Substance: INFLIXIMAB
     Indication: COLITIS ULCERATIVE
     Dosage: 5 MG PER KG EVERY 6 WEEKS, IV
     Route: 042
     Dates: start: 20180511

REACTIONS (3)
  - Dyspnoea [None]
  - Vomiting [None]
  - Erythema [None]
